FAERS Safety Report 9690645 (Version 1)
Quarter: 2013Q4

REPORT INFORMATION
  Report Type: Spontaneous
  Country: US (occurrence: None)
  Receive Date: 20131114
  Receipt Date: 20131114
  Transmission Date: 20140711
  Serious: Yes (Other)
  Sender: FDA-Public Use
  Company Number: None

PATIENT
  Age: 97 Year
  Sex: Female

DRUGS (5)
  1. ATENOLOL [Suspect]
     Indication: BLOOD PRESSURE
     Dosage: ONE BID ORAL
     Route: 048
     Dates: start: 20131026, end: 20131109
  2. HECTROL [Concomitant]
  3. SYNTHROID [Concomitant]
  4. AMLODIPINE [Concomitant]
  5. VITAMIN D [Concomitant]

REACTIONS (2)
  - Blood pressure increased [None]
  - Product substitution issue [None]
